FAERS Safety Report 6672375-4 (Version None)
Quarter: 2010Q2

REPORT INFORMATION
  Report Type: 
  Country: None (occurrence: None)
  Receive Date: 20100408
  Receipt Date: 20100329
  Transmission Date: 20101027
  Serious: Yes (Other)
  Sender: FDA-Public Use
  Company Number: US-JNJFOC-20100400251

PATIENT
  Age: 94 Year
  Sex: Female
  Weight: 54.43 kg

DRUGS (2)
  1. EXTRA STRENGTH TYLENOL [Suspect]
     Route: 048
  2. EXTRA STRENGTH TYLENOL [Suspect]
     Indication: ARTHRALGIA
     Route: 048

REACTIONS (3)
  - ABDOMINAL PAIN UPPER [None]
  - HALLUCINATION [None]
  - PRODUCT QUALITY ISSUE [None]
